FAERS Safety Report 8391642-X (Version None)
Quarter: 2012Q1

REPORT INFORMATION
  Report Type: 
  Country: None (occurrence: None)
  Receive Date: 20120323
  Receipt Date: 20110224
  Transmission Date: 20120608
  Serious: Yes (Death, Hospitalization)
  Sender: FDA-Public Use
  Company Number: 163-21880-11023233

PATIENT
  Age: 77 Year
  Sex: Female

DRUGS (13)
  1. PYRIDOXINE HYDROCHLORIDE [Concomitant]
  2. PRILOSEC [Concomitant]
  3. REVLIMID [Suspect]
     Indication: MULTIPLE MYELOMA
     Dosage: 25 MG, 1 IN 1 D, PO, 10 MG, 1 IN 1 D, PO, 1 IN 1 D, PO
     Route: 048
     Dates: start: 20090701
  4. REVLIMID [Suspect]
     Indication: MULTIPLE MYELOMA
     Dosage: 25 MG, 1 IN 1 D, PO, 10 MG, 1 IN 1 D, PO, 1 IN 1 D, PO
     Route: 048
     Dates: start: 20091101
  5. REVLIMID [Suspect]
     Indication: MULTIPLE MYELOMA
     Dosage: 25 MG, 1 IN 1 D, PO, 10 MG, 1 IN 1 D, PO, 1 IN 1 D, PO
     Route: 048
     Dates: start: 20100301
  6. FUROSEMIDE [Concomitant]
  7. DIAZEPAM [Concomitant]
  8. MEGA PROTECT (ALL OTHER THERAPEUTIC PRODUCTS) [Concomitant]
  9. DOCUSATE (DOCUSATE) [Concomitant]
  10. SENOKOT (SEMMA FRUIT) [Concomitant]
  11. DEXAMETHASONE [Concomitant]
  12. LEVOTHYROXINE SODIUM [Concomitant]
  13. LORTAB [Concomitant]

REACTIONS (3)
  - NEUROPATHY PERIPHERAL [None]
  - SMALL INTESTINAL OBSTRUCTION [None]
  - CARDIAC FAILURE CONGESTIVE [None]
